FAERS Safety Report 23574680 (Version 1)
Quarter: 2024Q1

REPORT INFORMATION
  Report Type: Spontaneous
  Country: AU (occurrence: AU)
  Receive Date: 20240228
  Receipt Date: 20240228
  Transmission Date: 20240410
  Serious: Yes (Death, Life-Threatening, Hospitalization, Other)
  Sender: FDA-Public Use
  Company Number: AU-BRISTOL-MYERS SQUIBB COMPANY-2024-031143

PATIENT
  Age: 65 Year
  Sex: Male

DRUGS (1)
  1. APIXABAN [Suspect]
     Active Substance: APIXABAN
     Indication: Atrial fibrillation

REACTIONS (6)
  - Depressed level of consciousness [Unknown]
  - Fall [Unknown]
  - Incontinence [Unknown]
  - Cerebral haematoma [Fatal]
  - Subdural haematoma [Fatal]
  - Vomiting [Unknown]

NARRATIVE: CASE EVENT DATE: 20230606
